FAERS Safety Report 13044170 (Version 1)
Quarter: 2016Q4

REPORT INFORMATION
  Report Type: Spontaneous
  Country: US (occurrence: US)
  Receive Date: 20161219
  Receipt Date: 20161219
  Transmission Date: 20170207
  Serious: No
  Sender: FDA-Public Use
  Company Number: None

PATIENT
  Age: 62 Year
  Sex: Male

DRUGS (2)
  1. WARFARIN [Concomitant]
     Active Substance: WARFARIN
  2. HUMIRA [Suspect]
     Active Substance: ADALIMUMAB
     Indication: RHEUMATOID ARTHRITIS
     Route: 058
     Dates: start: 20130213

REACTIONS (5)
  - Thrombosis [None]
  - Myocardial infarction [None]
  - Ankylosing spondylitis [None]
  - Cardiac disorder [None]
  - Cerebrovascular accident [None]

NARRATIVE: CASE EVENT DATE: 201608
